FAERS Safety Report 12010096 (Version 1)
Quarter: 2016Q1

REPORT INFORMATION
  Report Type: Spontaneous
  Country: US (occurrence: None)
  Receive Date: 20160204
  Receipt Date: 20160204
  Transmission Date: 20160526
  Serious: Yes (Hospitalization)
  Sender: FDA-Public Use
  Company Number: None

PATIENT
  Age: 65 Year
  Sex: Female
  Weight: 65.77 kg

DRUGS (15)
  1. PRAVASTATIN [Concomitant]
     Active Substance: PRAVASTATIN\PRAVASTATIN SODIUM
  2. ALPRAZOLAM. [Concomitant]
     Active Substance: ALPRAZOLAM
  3. OLOPATADINE [Concomitant]
     Active Substance: OLOPATADINE
  4. VITAMIN D [Concomitant]
     Active Substance: CHOLECALCIFEROL
  5. ASPIRIN. [Concomitant]
     Active Substance: ASPIRIN
  6. FLAXSEED [Concomitant]
     Active Substance: FLAX SEED
  7. RABEPRAZOLE [Concomitant]
     Active Substance: RABEPRAZOLE
  8. ALIGN PROBIOTIC [Concomitant]
  9. CENTRUM SILVER [Concomitant]
     Active Substance: MINERALS\VITAMINS
  10. FOSAMAX [Suspect]
     Active Substance: ALENDRONATE SODIUM
     Indication: OSTEOPENIA
     Dosage: 1 PILL, 1X WEEK, MOUTH
     Dates: start: 199804, end: 201009
  11. SYNTHROID [Concomitant]
     Active Substance: LEVOTHYROXINE SODIUM
  12. CITRACAL [Concomitant]
     Active Substance: CALCIUM CITRATE
  13. RECLAST [Suspect]
     Active Substance: ZOLEDRONIC ACID
  14. PROLIA [Suspect]
     Active Substance: DENOSUMAB
  15. IPRATROPIUM BROMIDE. [Concomitant]
     Active Substance: IPRATROPIUM BROMIDE

REACTIONS (7)
  - Gait disturbance [None]
  - Stress fracture [None]
  - Asthenia [None]
  - Fall [None]
  - Neuralgia [None]
  - Pain in extremity [None]
  - Atypical femur fracture [None]

NARRATIVE: CASE EVENT DATE: 20150928
